FAERS Safety Report 8558337-0 (Version None)
Quarter: 2012Q3

REPORT INFORMATION
  Report Type: 
  Country: None (occurrence: None)
  Receive Date: 20120801
  Receipt Date: 20120719
  Transmission Date: 20120928
  Serious: Yes (Death, Hospitalization)
  Sender: FDA-Public Use
  Company Number: JP-009507513-2012SP031765

PATIENT

DRUGS (6)
  1. ALFAROL [Concomitant]
     Dosage: 1 MICROG/BODY, UNK
     Route: 048
     Dates: end: 20120517
  2. PRAVASTATIN [Concomitant]
     Indication: HYPERLIPIDAEMIA
     Dosage: 5 MG/BODY
     Route: 048
     Dates: end: 20120517
  3. FARESTON [Suspect]
     Indication: BREAST CANCER STAGE II
     Dosage: 120 MG, QD
     Route: 048
     Dates: start: 20110915, end: 20120517
  4. NORVASC [Concomitant]
     Indication: HYPERTENSION
     Dosage: 5 MG/BODY, UNK
     Route: 048
  5. PLETAL [Concomitant]
     Indication: CEREBRAL INFARCTION
     Dosage: 200 MG/BODY, UNK
     Route: 048
     Dates: end: 20120517
  6. TRICHLORMETHIAZIDE [Concomitant]
     Indication: HYPERTENSION
     Dosage: 2 MG/BODY, UNK
     Route: 048
     Dates: end: 20120517

REACTIONS (2)
  - BRONCHIECTASIS [None]
  - INTERSTITIAL LUNG DISEASE [None]
